FAERS Safety Report 9467957 (Version 5)
Quarter: 2014Q2

REPORT INFORMATION
  Report Type: Report from Study
  Country: CA (occurrence: CA)
  Receive Date: 20130821
  Receipt Date: 20140526
  Transmission Date: 20141212
  Serious: Yes (Other)
  Sender: FDA-Public Use
  Company Number: CA-ROCHE-1263026

PATIENT
  Sex: Female
  Weight: 74.8 kg

DRUGS (12)
  1. RITUXAN [Suspect]
     Indication: RHEUMATOID ARTHRITIS
     Dosage: FREQUENCY:  DAY 1 AND DAY 15?PREVIOUS DOSE 21/FEB/2013
     Route: 042
     Dates: start: 20110823
  2. ACLASTA [Suspect]
     Indication: BONE DENSITY ABNORMAL
     Route: 065
     Dates: start: 20130719
  3. PREDNISONE [Suspect]
     Indication: RHEUMATOID ARTHRITIS
     Route: 065
  4. SOLU-CORTEF [Suspect]
     Indication: PREMEDICATION
     Route: 042
     Dates: start: 20110823
  5. DIPHENHYDRAMINE HCL [Concomitant]
     Indication: PREMEDICATION
     Route: 048
     Dates: start: 20110823
  6. ACETAMINOPHEN [Concomitant]
     Indication: PREMEDICATION
     Route: 048
     Dates: start: 20110823
  7. AVAPRO [Concomitant]
     Indication: BLOOD PRESSURE
  8. COUMADIN [Concomitant]
  9. OMEGA 3 [Concomitant]
  10. ATIVAN [Concomitant]
     Dosage: AS REQUIRED
     Route: 065
  11. HYDROCHLOROTHIAZIDE [Concomitant]
  12. MELATONIN [Concomitant]

REACTIONS (8)
  - Nervous system disorder [Not Recovered/Not Resolved]
  - Toe operation [Unknown]
  - Bone density abnormal [Unknown]
  - Tendon disorder [Unknown]
  - Diarrhoea [Not Recovered/Not Resolved]
  - Insomnia [Unknown]
  - Weight increased [Unknown]
  - Pruritus [Unknown]
